FAERS Safety Report 19406812 (Version 6)
Quarter: 2022Q1

REPORT INFORMATION
  Report Type: Spontaneous
  Country: US (occurrence: US)
  Receive Date: 20210611
  Receipt Date: 20220111
  Transmission Date: 20220423
  Serious: No
  Sender: FDA-Public Use
  Company Number: US-GLAXOSMITHKLINE-US2021AMR123241

PATIENT
  Sex: Female

DRUGS (4)
  1. ZEJULA [Suspect]
     Active Substance: NIRAPARIB
     Indication: Ovarian cancer
     Dosage: 200 MG, QD
  2. ZEJULA [Suspect]
     Active Substance: NIRAPARIB
     Dosage: 100 MG, QD
     Dates: start: 202108
  3. ZEJULA [Suspect]
     Active Substance: NIRAPARIB
     Dosage: UNK UNK, Z (100 MG ALTERNATIONG WITH 200 MG QOD)
  4. ZEJULA [Suspect]
     Active Substance: NIRAPARIB
     Dosage: UNK (1 CAP ONE DAY, 2 CAPSULE NEXT DAY, AND 2 CAP NEXT DAY)

REACTIONS (10)
  - Fatigue [Recovered/Resolved]
  - Constipation [Not Recovered/Not Resolved]
  - Red blood cell count decreased [Not Recovered/Not Resolved]
  - Blood creatine increased [Unknown]
  - Blood glucose increased [Unknown]
  - Haemoglobin decreased [Unknown]
  - Renal disorder [Unknown]
  - Dizziness [Unknown]
  - Inappropriate schedule of product administration [Unknown]
  - Drug ineffective [Unknown]
